FAERS Safety Report 11672341 (Version 1)
Quarter: 2015Q4

REPORT INFORMATION
  Report Type: Spontaneous
  Country: US (occurrence: US)
  Receive Date: 20151028
  Receipt Date: 20151028
  Transmission Date: 20160304
  Serious: Yes (Other)
  Sender: FDA-Public Use
  Company Number: US-BEH-2015053708

PATIENT
  Sex: Female
  Weight: 90 kg

DRUGS (30)
  1. HEPARIN [Concomitant]
     Active Substance: HEPARIN SODIUM
  2. NEXIUM [Concomitant]
     Active Substance: ESOMEPRAZOLE MAGNESIUM
  3. PROPAFENONE. [Concomitant]
     Active Substance: PROPAFENONE
  4. METFORMIN [Concomitant]
     Active Substance: METFORMIN HYDROCHLORIDE
  5. TRIAMTERENE HYDROCHLORTHIAZIDE [Concomitant]
  6. PRIVIGEN [Suspect]
     Active Substance: HUMAN IMMUNOGLOBULIN G
     Indication: AUTOIMMUNE DISORDER
     Dosage: 5 GM VIALS
     Route: 042
  7. PRIVIGEN [Suspect]
     Active Substance: HUMAN IMMUNOGLOBULIN G
     Indication: IMMUNODEFICIENCY COMMON VARIABLE
     Dosage: 20 GM VIALS
     Route: 042
  8. EPIPEN [Concomitant]
     Active Substance: EPINEPHRINE
  9. PREMARIN [Concomitant]
     Active Substance: ESTROGENS, CONJUGATED
  10. OXYCODONE [Concomitant]
     Active Substance: OXYCODONE
  11. ALLEGRA [Concomitant]
     Active Substance: FEXOFENADINE HYDROCHLORIDE
  12. ACETAMINOPHEN. [Concomitant]
     Active Substance: ACETAMINOPHEN
  13. LIDOCAINE. [Concomitant]
     Active Substance: LIDOCAINE
  14. TOBRAMYCIN. [Concomitant]
     Active Substance: TOBRAMYCIN
  15. CYMBALTA [Concomitant]
     Active Substance: DULOXETINE HYDROCHLORIDE
  16. AMBIEN [Concomitant]
     Active Substance: ZOLPIDEM TARTRATE
  17. TOPROL XL [Concomitant]
     Active Substance: METOPROLOL SUCCINATE
  18. LEVOXYL [Concomitant]
     Active Substance: LEVOTHYROXINE SODIUM
  19. KLOR-CON [Concomitant]
     Active Substance: POTASSIUM CHLORIDE
  20. DIPHENHYDRAMINE. [Concomitant]
     Active Substance: DIPHENHYDRAMINE
  21. ADCIRCA [Concomitant]
     Active Substance: TADALAFIL
  22. PRIVIGEN [Suspect]
     Active Substance: HUMAN IMMUNOGLOBULIN G
     Route: 042
  23. INVANZ [Concomitant]
     Active Substance: ERTAPENEM SODIUM
  24. MEDROL [Concomitant]
     Active Substance: METHYLPREDNISOLONE
  25. BUTRANS [Concomitant]
     Active Substance: BUPRENORPHINE
  26. AMLODIPINE BESYLATE. [Concomitant]
     Active Substance: AMLODIPINE BESYLATE
  27. COUMADIN [Concomitant]
     Active Substance: WARFARIN SODIUM
  28. PRIVIGEN [Suspect]
     Active Substance: HUMAN IMMUNOGLOBULIN G
     Indication: HYPOGAMMAGLOBULINAEMIA
     Route: 042
  29. SODIUM CHLORIDE. [Concomitant]
     Active Substance: SODIUM CHLORIDE
  30. CUBICIN [Concomitant]
     Active Substance: DAPTOMYCIN

REACTIONS (2)
  - Kidney infection [Unknown]
  - Urinary tract infection [Unknown]
